FAERS Safety Report 10752532 (Version 13)
Quarter: 2017Q1

REPORT INFORMATION
  Report Type: Report from Study
  Country: BR (occurrence: BR)
  Receive Date: 20150130
  Receipt Date: 20170329
  Transmission Date: 20170428
  Serious: Yes (Other)
  Sender: FDA-Public Use
  Company Number: PHHY2014BR042951

PATIENT
  Age: 73 Year
  Sex: Female
  Weight: 68 kg

DRUGS (16)
  1. CREON [Concomitant]
     Active Substance: PANCRELIPASE AMYLASE\PANCRELIPASE LIPASE\PANCRELIPASE PROTEASE
     Indication: PANCREATIC DISORDER
     Dosage: 25 MG, UNK
     Route: 048
  2. SANDOSTATIN LAR DEPOT [Suspect]
     Active Substance: OCTREOTIDE ACETATE
     Dosage: 30 MG, QMO (EVERY 28 DAYS)
     Route: 030
     Dates: start: 201201
  3. CREON [Concomitant]
     Active Substance: PANCRELIPASE AMYLASE\PANCRELIPASE LIPASE\PANCRELIPASE PROTEASE
     Dosage: 1 DF, QD
     Route: 048
  4. PONDERA [Concomitant]
     Active Substance: PAROXETINE HYDROCHLORIDE
     Indication: DEPRESSION
     Dosage: 20 MG, QD
     Route: 048
  5. SANDOSTATIN LAR DEPOT [Suspect]
     Active Substance: OCTREOTIDE ACETATE
     Indication: NEUROENDOCRINE TUMOUR
     Dosage: 10 MG, QMO
     Route: 030
     Dates: start: 2011
  6. SANDOSTATIN LAR DEPOT [Suspect]
     Active Substance: OCTREOTIDE ACETATE
     Indication: HEPATIC NEOPLASM
     Dosage: 20 MG, QMO
     Route: 030
  7. ENALAPRIL MALEATE. [Concomitant]
     Active Substance: ENALAPRIL MALEATE
     Indication: BLOOD PRESSURE INCREASED
     Dosage: 10 MG, QD
     Route: 048
  8. TANDERA [Concomitant]
     Indication: DEPRESSION
     Dosage: 1 DF, QD
     Route: 048
  9. ATENOLOL. [Concomitant]
     Active Substance: ATENOLOL
     Indication: BLOOD PRESSURE INCREASED
     Dosage: 02 DF, QD
     Route: 048
  10. TYLENOL [Concomitant]
     Active Substance: ACETAMINOPHEN
     Indication: HEADACHE
     Route: 065
  11. ACLASTA [Concomitant]
     Active Substance: ZOLEDRONIC ACID
     Indication: PRODUCT USED FOR UNKNOWN INDICATION
     Route: 065
  12. LEVOID [Concomitant]
     Active Substance: LEVOTHYROXINE
     Indication: THYROID DISORDER
     Dosage: 1 DF, QD
     Route: 048
  13. NATRILIX [Concomitant]
     Active Substance: INDAPAMIDE
     Indication: BLOOD PRESSURE INCREASED
     Dosage: 1.5 MG, QD
     Route: 048
  14. ADDERA D3 [Concomitant]
     Active Substance: CHOLECALCIFEROL
     Indication: PRODUCT USED FOR UNKNOWN INDICATION
     Dosage: 03 DF, QW
     Route: 065
  15. TIORFAN [Concomitant]
     Active Substance: RACECADOTRIL
     Indication: PROCEDURAL PAIN
     Route: 048
  16. SYNTHROID [Concomitant]
     Active Substance: LEVOTHYROXINE SODIUM
     Indication: THYROID DISORDER
     Dosage: 50 MG, QD
     Route: 048

REACTIONS (27)
  - Injection site pain [Recovered/Resolved]
  - Crying [Unknown]
  - Nausea [Recovered/Resolved]
  - Asthenia [Unknown]
  - Depression [Recovering/Resolving]
  - Feeling abnormal [Unknown]
  - Dementia Alzheimer^s type [Not Recovered/Not Resolved]
  - Diarrhoea [Recovering/Resolving]
  - Injection site mass [Recovered/Resolved]
  - Malaise [Unknown]
  - Injection site induration [Recovered/Resolved]
  - Injection site bruising [Recovered/Resolved]
  - Drug ineffective [Unknown]
  - Weight decreased [Not Recovered/Not Resolved]
  - Insomnia [Recovering/Resolving]
  - Osteoporosis [Recovering/Resolving]
  - Wrong technique in product usage process [Unknown]
  - Speech disorder [Not Recovered/Not Resolved]
  - Mood altered [Unknown]
  - Injection site erythema [Recovered/Resolved]
  - Needle issue [Unknown]
  - Tachycardia [Recovering/Resolving]
  - Thyroid disorder [Unknown]
  - Amnesia [Not Recovered/Not Resolved]
  - Cognitive disorder [Recovering/Resolving]
  - Confusional state [Not Recovered/Not Resolved]
  - Malabsorption from injection site [Unknown]

NARRATIVE: CASE EVENT DATE: 201211
